FAERS Safety Report 15394771 (Version 1)
Quarter: 2018Q3

REPORT INFORMATION
  Report Type: Spontaneous
  Country: US (occurrence: US)
  Receive Date: 20180918
  Receipt Date: 20180918
  Transmission Date: 20181010
  Serious: Yes (Hospitalization, Other)
  Sender: FDA-Public Use
  Company Number: US-ABBVIE-18K-163-2483803-00

PATIENT
  Age: 31 Year
  Sex: Female
  Weight: 77.18 kg

DRUGS (7)
  1. METHOTREXATE. [Suspect]
     Active Substance: METHOTREXATE
     Indication: PSORIATIC ARTHROPATHY
     Dosage: THERAPY END DATE: NOV OR DEC 2017
     Route: 065
     Dates: start: 201609, end: 2017
  2. HUMIRA [Suspect]
     Active Substance: ADALIMUMAB
     Dosage: THERAPY START DATE: JUNE OR JULY 2018
     Route: 058
     Dates: start: 2018
  3. HUMIRA [Suspect]
     Active Substance: ADALIMUMAB
     Route: 058
     Dates: start: 2014, end: 2017
  4. SEROQUEL [Concomitant]
     Active Substance: QUETIAPINE FUMARATE
     Indication: BIPOLAR DISORDER
  5. EFFEXOR [Concomitant]
     Active Substance: VENLAFAXINE HYDROCHLORIDE
     Indication: BIPOLAR DISORDER
  6. HUMIRA [Suspect]
     Active Substance: ADALIMUMAB
     Indication: PSORIATIC ARTHROPATHY
     Route: 058
     Dates: start: 2009
  7. OMEPRAZOLE. [Concomitant]
     Active Substance: OMEPRAZOLE
     Indication: DYSPEPSIA

REACTIONS (10)
  - Weight decreased [Recovered/Resolved]
  - Product storage error [Recovered/Resolved]
  - Drug administration error [Recovered/Resolved]
  - Placental insufficiency [Recovered/Resolved]
  - Exposure during pregnancy [Unknown]
  - Therapeutic response shortened [Not Recovered/Not Resolved]
  - Pain [Not Recovered/Not Resolved]
  - Haemorrhage in pregnancy [Recovered/Resolved]
  - Live birth [Unknown]
  - Abdominal discomfort [Recovered/Resolved]

NARRATIVE: CASE EVENT DATE: 2016
